FAERS Safety Report 8780262 (Version 1)
Quarter: 2012Q4

REPORT INFORMATION
  Report Type: Spontaneous
  Country: DE (occurrence: None)
  Receive Date: 20120829
  Receipt Date: 20120829
  Transmission Date: 20130627
  Serious: Yes (Hospitalization)
  Sender: FDA-Public Use
  Company Number: GER/GER/12/0025484

PATIENT
  Age: 60 Year
  Sex: Female
  Weight: 173 kg

DRUGS (1)
  1. CITALOPRAM (CITALOPRAM) [Suspect]
     Indication: DEPRESSION
     Dates: start: 20100208, end: 20120130

REACTIONS (2)
  - Pulmonary haemorrhage [None]
  - Bronchial haemorrhage [None]
